FAERS Safety Report 8794779 (Version 3)
Quarter: 2012Q4

REPORT INFORMATION
  Report Type: 
  Country: US (occurrence: US)
  Receive Date: 20120917
  Receipt Date: 20121121
  Transmission Date: 20130627
  Serious: Yes (Hospitalization, Other)
  Sender: FDA-Public Use
  Company Number: US-BAXTER-2012BAX016887

PATIENT
  Age: 65 Year
  Sex: Female

DRUGS (3)
  1. DIANEAL LOW CALCIUM [Suspect]
     Indication: PERITONEAL DIALYSIS
     Route: 033
     Dates: end: 20120903
  2. DIANEAL LOW CALCIUM [Suspect]
     Indication: PERITONEAL DIALYSIS
     Route: 033
     Dates: start: 20120904
  3. DIANEAL LOW CALCIUM [Suspect]
     Route: 033

REACTIONS (3)
  - Pleural effusion [Recovering/Resolving]
  - Peritoneal perforation [Recovered/Resolved]
  - Abdominal distension [Unknown]
